FAERS Safety Report 12455032 (Version 6)
Quarter: 2017Q2

REPORT INFORMATION
  Report Type: Spontaneous
  Country: US (occurrence: US)
  Receive Date: 20160610
  Receipt Date: 20170517
  Transmission Date: 20170830
  Serious: No
  Sender: FDA-Public Use
  Company Number: US-PFIZER INC-2016293345

PATIENT
  Age: 88 Year
  Sex: Female

DRUGS (2)
  1. XELJANZ [Suspect]
     Active Substance: TOFACITINIB CITRATE
     Indication: HERPES ZOSTER
     Dosage: 5 MG, 2X/DAY
  2. METHOTREXATE. [Concomitant]
     Active Substance: METHOTREXATE
     Dosage: 8 DF, WEEKLY EVERY FRIDAY

REACTIONS (4)
  - Product use in unapproved indication [Unknown]
  - Skin disorder [Unknown]
  - Rash [Unknown]
  - Rosacea [Not Recovered/Not Resolved]
